FAERS Safety Report 18474521 (Version 1)
Quarter: 2020Q4

REPORT INFORMATION
  Report Type: Spontaneous
  Country: CA (occurrence: CA)
  Receive Date: 20201106
  Receipt Date: 20201106
  Transmission Date: 20210114
  Serious: Yes (Other)
  Sender: FDA-Public Use
  Company Number: CA-009507513-1602CAN002902

PATIENT
  Age: 58 Year
  Sex: Female
  Weight: 82.1 kg

DRUGS (3)
  1. ZOSTAVAX [Suspect]
     Active Substance: VARICELLA-ZOSTER VIRUS STRAIN OKA/MERCK LIVE ANTIGEN
     Indication: PROPHYLAXIS
     Dosage: .65 MILLILITER
     Route: 058
  2. ZOSTAVAX [Suspect]
     Active Substance: VARICELLA-ZOSTER VIRUS STRAIN OKA/MERCK LIVE ANTIGEN
     Indication: PROPHYLAXIS
  3. STERILE DILUENT (WATER) [Suspect]
     Active Substance: WATER
     Dosage: UNK

REACTIONS (3)
  - Miosis [Not Recovered/Not Resolved]
  - Eyelid ptosis [Not Recovered/Not Resolved]
  - Diplopia [Not Recovered/Not Resolved]

NARRATIVE: CASE EVENT DATE: 20141105
